FAERS Safety Report 15337840 (Version 1)
Quarter: 2018Q3

REPORT INFORMATION
  Report Type: Spontaneous
  Country: US (occurrence: US)
  Receive Date: 20180827
  Receipt Date: 20180827
  Transmission Date: 20181010
  Serious: No
  Sender: FDA-Public Use
  Company Number: None

PATIENT
  Sex: Female

DRUGS (1)
  1. HARVONI [Suspect]
     Active Substance: LEDIPASVIR\SOFOSBUVIR
     Indication: HEPATITIS VIRAL
     Dosage: 1 TABLET DAILY BY MOUTH
     Route: 048
     Dates: start: 20180707

REACTIONS (5)
  - Anxiety [None]
  - Mental disorder [None]
  - Alopecia [None]
  - Weight decreased [None]
  - Decreased appetite [None]
